FAERS Safety Report 7625942-5 (Version None)
Quarter: 2011Q3

REPORT INFORMATION
  Report Type: 
  Country: None (occurrence: None)
  Receive Date: 20110721
  Receipt Date: 20110721
  Transmission Date: 20111222
  Serious: No
  Sender: FDA-Public Use
  Company Number: None

PATIENT
  Age: 48 Year
  Sex: Female
  Weight: 99.79 kg

DRUGS (2)
  1. ALLEGRA D 24 HOUR [Suspect]
     Indication: SINUS CONGESTION
     Dosage: ONE TABLET
     Route: 048
     Dates: start: 20110413, end: 20110713
  2. ALLEGRA-D 24 HOUR TABLET OTC [Concomitant]
     Indication: SINUS CONGESTION
     Dosage: ONE TABLET
     Route: 048
     Dates: start: 20110714, end: 20110718

REACTIONS (3)
  - MEDICATION RESIDUE [None]
  - NO THERAPEUTIC RESPONSE [None]
  - PRODUCT SOLUBILITY ABNORMAL [None]
